FAERS Safety Report 9317371 (Version 1)
Quarter: 2013Q2

REPORT INFORMATION
  Report Type: Spontaneous
  Country: US (occurrence: US)
  Receive Date: 20130530
  Receipt Date: 20130530
  Transmission Date: 20140414
  Serious: No
  Sender: FDA-Public Use
  Company Number: US-NOVEN-12US005210

PATIENT
  Age: 13 Year
  Sex: Male

DRUGS (1)
  1. DAYTRANA [Suspect]
     Indication: ATTENTION DEFICIT/HYPERACTIVITY DISORDER
     Dosage: UNK
     Route: 062
     Dates: start: 201208, end: 20120820

REACTIONS (5)
  - Application site rash [Unknown]
  - Application site pruritus [Unknown]
  - Drug administration error [Recovered/Resolved]
  - Incorrect drug administration duration [Unknown]
  - Wrong technique in drug usage process [Recovered/Resolved]
